FAERS Safety Report 15227966 (Version 1)
Quarter: 2018Q3

REPORT INFORMATION
  Report Type: Spontaneous
  Country: BR (occurrence: BR)
  Receive Date: 20180801
  Receipt Date: 20180801
  Transmission Date: 20181010
  Serious: Yes (Hospitalization, Other)
  Sender: FDA-Public Use
  Company Number: BR-PFIZER INC-2018295327

PATIENT
  Age: 74 Year
  Sex: Male

DRUGS (3)
  1. XALATAN [Suspect]
     Active Substance: LATANOPROST
     Indication: GLAUCOMA
     Dosage: 1 DROP EACH EYE, TWICE PER DAY (6 MCG OF LATANOPROST)
     Route: 047
  2. SIMBRINZA [Concomitant]
     Active Substance: BRIMONIDINE TARTRATE\BRINZOLAMIDE
     Dosage: UNK
  3. XALACOM [Suspect]
     Active Substance: LATANOPROST\TIMOLOL MALEATE
     Indication: GLAUCOMA
     Dosage: 1 DROP EACH EYE, TWICE PER DAY (6 MCG OF LATANOPROST AND 600 MCG OF TIMOLOL)
     Route: 047
     Dates: start: 2014

REACTIONS (3)
  - Overdose [Unknown]
  - Infarction [Recovered/Resolved with Sequelae]
  - Cardiac disorder [Unknown]

NARRATIVE: CASE EVENT DATE: 201701
